FAERS Safety Report 7750299-9 (Version None)
Quarter: 2011Q3

REPORT INFORMATION
  Report Type: 
  Country: None (occurrence: None)
  Receive Date: 20110914
  Receipt Date: 20110901
  Transmission Date: 20111222
  Serious: Yes (Hospitalization, Other)
  Sender: FDA-Public Use
  Company Number: US-ELI_LILLY_AND_COMPANY-US201102007554

PATIENT
  Age: 85 Year
  Sex: Female

DRUGS (4)
  1. FORTEO [Suspect]
     Dosage: 20 UG, DAILY (1/D)
  2. FORTEO [Suspect]
     Indication: OSTEOPOROSIS
     Dosage: 20 UG, DAILY (1/D)
     Dates: start: 20090401
  3. CALCIUM CARBONATE [Concomitant]
     Indication: CARDIAC DISORDER
  4. PRESERVISION LUTEIN EYE VITA.+MIN.SUP.SOFTG. [Concomitant]
     Indication: VITAMIN SUPPLEMENTATION

REACTIONS (7)
  - INTENTIONAL DRUG MISUSE [None]
  - STRESS CARDIOMYOPATHY [None]
  - COMPRESSION FRACTURE [None]
  - INSOMNIA [None]
  - BONE PAIN [None]
  - HEADACHE [None]
  - BACK PAIN [None]
